FAERS Safety Report 23338191 (Version 1)
Quarter: 2023Q4

REPORT INFORMATION
  Report Type: Spontaneous
  Country: US (occurrence: None)
  Receive Date: 20231223
  Receipt Date: 20231223
  Transmission Date: 20240109
  Serious: No
  Sender: FDA-Public Use
  Company Number: None

PATIENT
  Age: 76 Year
  Sex: Female
  Weight: 86.85 kg

DRUGS (2)
  1. RHOFADE [Suspect]
     Active Substance: OXYMETAZOLINE HYDROCHLORIDE
     Indication: Rosacea
     Route: 061
     Dates: start: 20231129, end: 20231215
  2. DEVICE [Suspect]
     Active Substance: DEVICE

REACTIONS (6)
  - Drug ineffective [None]
  - Device leakage [None]
  - Skin ulcer [None]
  - Poor quality sleep [None]
  - Ulcer haemorrhage [None]
  - Therapy cessation [None]

NARRATIVE: CASE EVENT DATE: 20231129
